FAERS Safety Report 8258462 (Version 3)
Quarter: 2018Q4

REPORT INFORMATION
  Report Type: Spontaneous
  Country: GB (occurrence: GB)
  Receive Date: 20111122
  Receipt Date: 20181122
  Transmission Date: 20190205
  Serious: Yes (Other)
  Sender: FDA-Public Use
  Company Number: GB-PFIZER INC-2011282526

PATIENT
  Age: 47 Year
  Sex: Female
  Weight: 79 kg

DRUGS (1)
  1. AMLODIPINE BESILATE [Suspect]
     Active Substance: AMLODIPINE BESYLATE
     Indication: HYPERTENSION
     Dosage: 10 MG, UNK
     Route: 048
     Dates: start: 20101213, end: 20111031

REACTIONS (4)
  - Noninfective gingivitis [Unknown]
  - Discomfort [Unknown]
  - Gingival swelling [Unknown]
  - Pain [Unknown]
